FAERS Safety Report 7543363-0 (Version None)
Quarter: 2011Q2

REPORT INFORMATION
  Report Type: 
  Country: None (occurrence: None)
  Receive Date: 20110613
  Receipt Date: 20110601
  Transmission Date: 20111010
  Serious: Yes (Hospitalization)
  Sender: FDA-Public Use
  Company Number: US-ACTELION-A-NJ2011-49729

PATIENT

DRUGS (2)
  1. TRACLEER [Suspect]
     Indication: PULMONARY ARTERIAL HYPERTENSION
     Dosage: UNK
     Route: 048
     Dates: start: 20060428
  2. REVATIO [Concomitant]

REACTIONS (5)
  - FLUID RETENTION [None]
  - EMBOLISM [None]
  - BLINDNESS UNILATERAL [None]
  - LABILE BLOOD PRESSURE [None]
  - ATRIAL FIBRILLATION [None]
